FAERS Safety Report 14831646 (Version 1)
Quarter: 2018Q2

REPORT INFORMATION
  Report Type: Spontaneous
  Country: FR (occurrence: FR)
  Receive Date: 20180501
  Receipt Date: 20180501
  Transmission Date: 20180711
  Serious: Yes (Hospitalization)
  Sender: FDA-Public Use
  Company Number: FR-ROCHE-2116580

PATIENT
  Age: 71 Year
  Sex: Female
  Weight: 28.15 kg

DRUGS (1)
  1. ACTILYSE [Suspect]
     Active Substance: ALTEPLASE
     Indication: ISCHAEMIC STROKE
     Route: 042
     Dates: start: 20180401, end: 20180401

REACTIONS (1)
  - Disseminated intravascular coagulation [Not Recovered/Not Resolved]

NARRATIVE: CASE EVENT DATE: 20180403
